FAERS Safety Report 20913378 (Version 2)
Quarter: 2022Q2

REPORT INFORMATION
  Report Type: Spontaneous
  Country: PT (occurrence: PT)
  Receive Date: 20220603
  Receipt Date: 20220622
  Transmission Date: 20220721
  Serious: Yes (Other)
  Sender: FDA-Public Use
  Company Number: None

PATIENT
  Age: 82 Year
  Sex: Male
  Weight: 79 kg

DRUGS (21)
  1. VELTASSA [Suspect]
     Active Substance: PATIROMER
     Indication: Hyperkalaemia
     Route: 048
     Dates: start: 20201203, end: 20220225
  2. VELTASSA [Suspect]
     Active Substance: PATIROMER
     Route: 048
     Dates: start: 20220225, end: 20220420
  3. BISOPROLOL [Concomitant]
     Active Substance: BISOPROLOL
     Route: 048
  4. TROMALYT [Concomitant]
     Active Substance: ASPIRIN
     Route: 048
  5. ALLOPURINOL [Concomitant]
     Active Substance: ALLOPURINOL
     Route: 048
  6. PRAVASTATINA [PRAVASTATIN] [Concomitant]
     Route: 048
  7. CALCIUM\POLYSTYRENE [Concomitant]
     Active Substance: CALCIUM\POLYSTYRENE
     Route: 048
  8. INSULINA HUMALOG [Concomitant]
     Route: 058
  9. OMEPRAZOLE [Concomitant]
     Active Substance: OMEPRAZOLE
     Route: 048
  10. LAMIVUDINE [Concomitant]
     Active Substance: LAMIVUDINE
     Route: 048
  11. FUROSEMIDE [Concomitant]
     Active Substance: FUROSEMIDE
     Route: 048
     Dates: end: 20220420
  12. LERCANIDIPINA [LERCANIDIPINE] [Concomitant]
     Route: 048
  13. TRAZODONE HYDROCHLORIDE [Concomitant]
     Active Substance: TRAZODONE HYDROCHLORIDE
     Route: 048
  14. DOLUTEGRAVIR [Concomitant]
     Active Substance: DOLUTEGRAVIR
     Route: 048
  15. SPIRONOLACTONE [Concomitant]
     Active Substance: SPIRONOLACTONE
     Dosage: 1 CP EM JEJUM
     Route: 048
     Dates: end: 20220317
  16. SPIRONOLACTONE [Concomitant]
     Active Substance: SPIRONOLACTONE
     Route: 048
     Dates: start: 20220317, end: 20220420
  17. ENTRESTO [Concomitant]
     Active Substance: SACUBITRIL\VALSARTAN
     Route: 048
  18. INVOKANA [Concomitant]
     Active Substance: CANAGLIFLOZIN
     Route: 048
  19. CARBONATO DE CALCIO [Concomitant]
     Route: 048
  20. LANTUS [Concomitant]
     Active Substance: INSULIN GLARGINE
     Route: 058
  21. LANTUS [Concomitant]
     Active Substance: INSULIN GLARGINE
     Dosage: 30 UNIDADES EM JEJUM
     Route: 058

REACTIONS (3)
  - Metabolic acidosis [Unknown]
  - Acute kidney injury [Unknown]
  - Hyperkalaemia [Unknown]

NARRATIVE: CASE EVENT DATE: 20220225
